FAERS Safety Report 5990991-X (Version None)
Quarter: 2008Q4

REPORT INFORMATION
  Report Type: 
  Country: None (occurrence: None)
  Receive Date: 20081211
  Receipt Date: 20081201
  Transmission Date: 20090506
  Serious: Yes (Other)
  Sender: FDA-Public Use
  Company Number: US-BAXTER-2008BH013295

PATIENT
  Age: 60 Year
  Sex: Female
  Weight: 60 kg

DRUGS (9)
  1. CYCLOPHOSPHAMIDE [Suspect]
     Indication: BREAST CANCER
     Route: 042
     Dates: start: 20081022, end: 20081126
  2. TAXOL [Suspect]
     Indication: BREAST CANCER
     Dosage: DOSE UNIT:UNKNOWN
     Route: 042
     Dates: start: 20080910, end: 20081008
  3. EPIRUBICIN [Suspect]
     Indication: BREAST CANCER
     Dosage: DOSE UNIT:UNKNOWN
     Route: 042
     Dates: start: 20080730, end: 20080827
  4. CIPROFLOXACIN HYDROCHLORIDE [Concomitant]
     Route: 048
     Dates: start: 20081026, end: 20081031
  5. NEULASTA [Concomitant]
     Route: 058
     Dates: start: 20081025, end: 20081025
  6. KEVATRIL [Concomitant]
     Route: 042
     Dates: start: 20081022, end: 20081022
  7. DEXAMETHASONE [Concomitant]
     Route: 042
     Dates: start: 20081023, end: 20081024
  8. EMEND [Concomitant]
     Route: 048
     Dates: start: 20081023, end: 20081024
  9. UROMITEXAN [Concomitant]
     Route: 042
     Dates: start: 20081022, end: 20081022

REACTIONS (1)
  - ARRHYTHMIA [None]
